FAERS Safety Report 15095971 (Version 1)
Quarter: 2018Q3

REPORT INFORMATION
  Report Type: Spontaneous
  Country: US (occurrence: US)
  Receive Date: 20180702
  Receipt Date: 20180702
  Transmission Date: 20181010
  Serious: No
  Sender: FDA-Public Use
  Company Number: US-JNJFOC-20180623784

PATIENT
  Age: 8 Year
  Sex: Female

DRUGS (1)
  1. NIZORAL A?D [Suspect]
     Active Substance: KETOCONAZOLE
     Indication: ECZEMA
     Route: 061

REACTIONS (2)
  - Product use in unapproved indication [Unknown]
  - Trichorrhexis [Unknown]
